FAERS Safety Report 19685663 (Version 2)
Quarter: 2021Q3

REPORT INFORMATION
  Report Type: Spontaneous
  Country: JP (occurrence: JP)
  Receive Date: 20210811
  Receipt Date: 20210813
  Transmission Date: 20211014
  Serious: Yes (Life-Threatening, Other)
  Sender: FDA-Public Use
  Company Number: JP-PFIZER INC-202100991047

PATIENT

DRUGS (2)
  1. LYRICA [Suspect]
     Active Substance: PREGABALIN
     Dosage: UNK
  2. FENTANYL. [Suspect]
     Active Substance: FENTANYL
     Dosage: UNK
     Route: 042

REACTIONS (1)
  - Coma [Recovered/Resolved]
